FAERS Safety Report 19611202 (Version 1)
Quarter: 2021Q3

REPORT INFORMATION
  Report Type: Spontaneous
  Country: AU (occurrence: AU)
  Receive Date: 20210726
  Receipt Date: 20210726
  Transmission Date: 20211014
  Serious: Yes (Life-Threatening, Hospitalization)
  Sender: FDA-Public Use
  Company Number: AU-BAUSCH-BL-2021-025207

PATIENT
  Age: 3 Month
  Sex: Female
  Weight: 4.2 kg

DRUGS (2)
  1. MINIMS CYCLOPENTOLATE HYDROCHLORIDE 1.0% [Suspect]
     Active Substance: CYCLOPENTOLATE HYDROCHLORIDE
     Indication: PUPIL DILATION PROCEDURE
     Route: 047
     Dates: start: 20210708, end: 20210708
  2. MINIMS PHENYLEPHRINE HYDROCHLORIDE 10% [Suspect]
     Active Substance: PHENYLEPHRINE HYDROCHLORIDE
     Indication: PUPIL DILATION PROCEDURE
     Route: 047
     Dates: start: 20210708, end: 20210708

REACTIONS (1)
  - Procedural hypertension [Recovered/Resolved]

NARRATIVE: CASE EVENT DATE: 20210708
